FAERS Safety Report 4348942-X (Version None)
Quarter: 2004Q2

REPORT INFORMATION
  Report Type: 
  Country: None (occurrence: None)
  Receive Date: 20040428
  Receipt Date: 20040227
  Transmission Date: 20050107
  Serious: Yes (Life-Threatening, Hospitalization, Other)
  Sender: FDA-Public Use
  Company Number: 200412944GDDC

PATIENT
  Age: 56 Year
  Sex: Female
  Weight: 80 kg

DRUGS (6)
  1. TAXOTERE [Suspect]
     Indication: BREAST CANCER
     Route: 042
     Dates: start: 20040119, end: 20040304
  2. ZOLEDRONIC ACID [Suspect]
     Indication: METASTASES TO BONE
     Route: 042
     Dates: start: 20021101, end: 20031201
  3. HERCEPTIN [Concomitant]
     Indication: METASTASES TO BONE
     Route: 042
     Dates: start: 20040119
  4. ESTRAMUSTINE [Concomitant]
     Indication: METASTASES TO BONE
     Route: 048
     Dates: start: 20030101
  5. GABAPENTIN [Concomitant]
     Indication: NEUROPATHIC PAIN
     Route: 048
     Dates: start: 20030101
  6. FLUOXETINE [Concomitant]
     Indication: DEPRESSION
     Route: 048
     Dates: start: 20030101

REACTIONS (4)
  - BONE MARROW DEPRESSION [None]
  - HYPOCALCAEMIA [None]
  - MYOCLONUS [None]
  - PARAESTHESIA [None]
